FAERS Safety Report 12311532 (Version 2)
Quarter: 2016Q2

REPORT INFORMATION
  Report Type: Spontaneous
  Country: US (occurrence: US)
  Receive Date: 20160427
  Receipt Date: 20160505
  Transmission Date: 20160815
  Serious: Yes (Hospitalization)
  Sender: FDA-Public Use
  Company Number: US-SIGMA-TAU US-2016STPI000314

PATIENT
  Age: 0 Day
  Sex: Female

DRUGS (6)
  1. ADAGEN [Suspect]
     Active Substance: PEGADEMASE BOVINE
     Indication: COMBINED IMMUNODEFICIENCY
     Dosage: 6 ML, QW
     Route: 058
  2. BACTRIM DS [Suspect]
     Active Substance: SULFAMETHOXAZOLE\TRIMETHOPRIM
     Indication: PROPHYLAXIS
     Dosage: 1 DF, UNK
     Dates: start: 201505, end: 201507
  3. IVIGLOB EX [Suspect]
     Active Substance: HUMAN IMMUNOGLOBULIN G
     Indication: PRODUCT USED FOR UNKNOWN INDICATION
     Dosage: UNK
     Dates: start: 201508
  4. PRENATAL VITAMINS                  /02014401/ [Suspect]
     Active Substance: VITAMINS
     Indication: PRODUCT USED FOR UNKNOWN INDICATION
     Dosage: UNK
  5. LABETALOL HCL [Suspect]
     Active Substance: LABETALOL HYDROCHLORIDE
     Indication: PRODUCT USED FOR UNKNOWN INDICATION
     Dosage: 40 MG, UNK
     Dates: start: 2015, end: 2015
  6. METHYLDOPA HCL [Suspect]
     Active Substance: METHYLDOPA
     Indication: PRODUCT USED FOR UNKNOWN INDICATION
     Dosage: UNK
     Dates: start: 201504, end: 201505

REACTIONS (5)
  - Temperature regulation disorder [Unknown]
  - Jaundice [Unknown]
  - Oligohydramnios [None]
  - Maternal drugs affecting foetus [None]
  - Low birth weight baby [Unknown]

NARRATIVE: CASE EVENT DATE: 20150825
